FAERS Safety Report 15347972 (Version 1)
Quarter: 2018Q3

REPORT INFORMATION
  Report Type: Spontaneous
  Country: US (occurrence: US)
  Receive Date: 20180904
  Receipt Date: 20180904
  Transmission Date: 20181010
  Serious: No
  Sender: FDA-Public Use
  Company Number: US-MYLANLABS-2018M1063217

PATIENT
  Age: 62 Year
  Sex: Female
  Weight: 66 kg

DRUGS (1)
  1. LIDOCAINE PATCH [Suspect]
     Active Substance: LIDOCAINE
     Indication: NECK PAIN
     Dosage: 5 %, BID, (ONCE A DAY FOR 12 HOURS PRN)
     Route: 003
     Dates: start: 201801

REACTIONS (3)
  - Product quality issue [Not Recovered/Not Resolved]
  - Product adhesion issue [Not Recovered/Not Resolved]
  - Drug ineffective for unapproved indication [Not Recovered/Not Resolved]

NARRATIVE: CASE EVENT DATE: 201801
